FAERS Safety Report 4336387-8 (Version None)
Quarter: 2004Q2

REPORT INFORMATION
  Report Type: 
  Country: None (occurrence: None)
  Receive Date: 20040412
  Receipt Date: 20040329
  Transmission Date: 20050107
  Serious: Yes (Hospitalization)
  Sender: FDA-Public Use
  Company Number: PHBS2004IR04496

PATIENT
  Age: 24 Year
  Sex: Male

DRUGS (1)
  1. METHYLPHENIDATE HCL [Suspect]
     Dosage: 60 MG/DAY
     Route: 048

REACTIONS (8)
  - ABASIA [None]
  - CEREBRAL INFARCTION [None]
  - CLAUSTROPHOBIA [None]
  - FACIAL PALSY [None]
  - HEMIPARESIS [None]
  - HYPOREFLEXIA [None]
  - HYPOTONIA [None]
  - LACUNAR INFARCTION [None]
